FAERS Safety Report 8012904-1 (Version None)
Quarter: 2011Q4

REPORT INFORMATION
  Report Type: 
  Country: None (occurrence: None)
  Receive Date: 20111229
  Receipt Date: 20111223
  Transmission Date: 20120403
  Serious: Yes (Other)
  Sender: FDA-Public Use
  Company Number: US-JNJFOC-20111210618

PATIENT
  Age: 40 Year
  Sex: Female
  Weight: 63.5 kg

DRUGS (4)
  1. ELMIRON [Suspect]
     Indication: CYSTITIS
     Route: 048
     Dates: start: 20110701, end: 20111101
  2. AMITRIPTYLINE [Concomitant]
     Indication: DEPRESSION
     Route: 065
  3. PROSED/DS [Concomitant]
     Indication: BLADDER SPASM
     Route: 065
  4. SOLU-CORTEF [Concomitant]
     Indication: CYSTITIS
     Route: 065

REACTIONS (1)
  - BREAST CANCER [None]
